FAERS Safety Report 18550757 (Version 1)
Quarter: 2020Q4

REPORT INFORMATION
  Report Type: Spontaneous
  Country: US (occurrence: US)
  Receive Date: 20201126
  Receipt Date: 20201126
  Transmission Date: 20210114
  Serious: Yes (Other)
  Sender: FDA-Public Use
  Company Number: US-PFIZER INC-2020465093

PATIENT
  Age: 74 Year
  Sex: Male
  Weight: 92.08 kg

DRUGS (2)
  1. PROVENGE [Concomitant]
     Active Substance: SIPULEUCEL-T
     Indication: IMMUNOCHEMOTHERAPY
  2. ATORVASTATIN CALCIUM. [Suspect]
     Active Substance: ATORVASTATIN CALCIUM
     Dosage: 80 MG, 1X/DAY (IN EVENING)
     Route: 048
     Dates: end: 202011

REACTIONS (4)
  - Hypokinesia [Recovering/Resolving]
  - Arthralgia [Recovering/Resolving]
  - Muscular weakness [Recovering/Resolving]
  - Myalgia [Recovering/Resolving]

NARRATIVE: CASE EVENT DATE: 202009
